FAERS Safety Report 8789488 (Version 2)
Quarter: 2012Q4

REPORT INFORMATION
  Report Type: 
  Country: GB (occurrence: None)
  Receive Date: 20120906
  Receipt Date: 20121005
  Transmission Date: 20130627
  Serious: Yes (Other)
  Sender: FDA-Public Use
  Company Number: AUR-APU-2012-03495

PATIENT
  Age: 49 Year
  Sex: Female

DRUGS (2)
  1. METFORMIN (METFORMIN) [Suspect]
     Indication: TYPE 2 DIABETES MELLITUS
     Dosage: 500mg 2 in morning and 2 in evening (500 mg), Oral
     Route: 048
  2. LISINOPRIL (LISINOPRIL) [Concomitant]

REACTIONS (6)
  - Urticaria [None]
  - Blister [None]
  - Urticaria [None]
  - Impaired work ability [None]
  - Product substitution issue [None]
  - Product quality issue [None]
